FAERS Safety Report 23588368 (Version 1)
Quarter: 2024Q1

REPORT INFORMATION
  Report Type: Spontaneous
  Country: SE (occurrence: SE)
  Receive Date: 20240302
  Receipt Date: 20240302
  Transmission Date: 20240409
  Serious: Yes (Other)
  Sender: FDA-Public Use
  Company Number: SE-SANDOZ-SDZ2024SE019770

PATIENT
  Sex: Male

DRUGS (8)
  1. Bisoprolol ebb [Concomitant]
     Indication: Product used for unknown indication
     Dosage: 1.25 MG
     Route: 065
  2. PRASUGREL HYDROCHLORIDE [Concomitant]
     Active Substance: PRASUGREL HYDROCHLORIDE
     Indication: Product used for unknown indication
     Dosage: 10 MG
     Route: 065
  3. EPLERENONE TEVA [Concomitant]
     Indication: Product used for unknown indication
     Dosage: 25 MG
     Route: 065
  4. DAPAGLIFLOZIN [Concomitant]
     Active Substance: DAPAGLIFLOZIN
     Indication: Product used for unknown indication
     Dosage: 10 MG
     Route: 065
  5. Furix [Concomitant]
     Indication: Product used for unknown indication
     Dosage: 20 MG
     Route: 065
  6. ROSUVASTATIN ZENTIVA [Concomitant]
     Indication: Product used for unknown indication
     Dosage: 40 MG
     Route: 065
  7. ALLOPURINOL [Interacting]
     Active Substance: ALLOPURINOL
     Indication: Gout
     Dosage: 100 MG
     Route: 065
     Dates: start: 202311
  8. RAMIPRIL [Interacting]
     Active Substance: RAMIPRIL
     Indication: Product used for unknown indication
     Dosage: 1.25 MG
     Route: 065

REACTIONS (2)
  - Myocardial infarction [Unknown]
  - Cardiac failure [Unknown]

NARRATIVE: CASE EVENT DATE: 20231218
